FAERS Safety Report 5624296-3 (Version None)
Quarter: 2008Q1

REPORT INFORMATION
  Report Type: 
  Country: None (occurrence: None)
  Receive Date: 20080213
  Receipt Date: 20080205
  Transmission Date: 20080703
  Serious: Yes (Other)
  Sender: FDA-Public Use
  Company Number: GB-JNJFOC-20071005090

PATIENT
  Sex: Male

DRUGS (9)
  1. REMICADE [Suspect]
     Route: 042
  2. REMICADE [Suspect]
     Indication: RHEUMATOID ARTHRITIS
     Route: 042
  3. SOURIUS [Concomitant]
     Dosage: 52 IU
  4. METHOTREXATE [Concomitant]
  5. FOLIC ACID [Concomitant]
  6. NOVORAPID [Concomitant]
     Dosage: 20-24 IU
  7. PENICILLIN V [Concomitant]
  8. ETORICOXIB [Concomitant]
  9. OMEPRAZOLE [Concomitant]

REACTIONS (4)
  - IMPAIRED HEALING [None]
  - LOWER LIMB FRACTURE [None]
  - OEDEMA PERIPHERAL [None]
  - ROAD TRAFFIC ACCIDENT [None]
